FAERS Safety Report 9471249 (Version 11)
Quarter: 2015Q1

REPORT INFORMATION
  Report Type: Report from Study
  Country: CA (occurrence: CA)
  Receive Date: 20130822
  Receipt Date: 20150206
  Transmission Date: 20150721
  Serious: Yes (Death, Hospitalization, Other)
  Sender: FDA-Public Use
  Company Number: CA-INCYTE CORPORATION-2013IN001909

PATIENT
  Age: 73 Year
  Sex: Female

DRUGS (9)
  1. PREDNISONE. [Concomitant]
     Active Substance: PREDNISONE
     Indication: PRODUCT USED FOR UNKNOWN INDICATION
     Dosage: UNK UKN, UNK
  2. RANITIDINE [Concomitant]
     Active Substance: RANITIDINE\RANITIDINE HYDROCHLORIDE
     Indication: PRODUCT USED FOR UNKNOWN INDICATION
     Dosage: UNK UKN, UNK
  3. EPREX [Concomitant]
     Active Substance: ERYTHROPOIETIN
     Indication: PRODUCT USED FOR UNKNOWN INDICATION
     Dosage: UNK UKN, UNK
  4. HYDREA [Concomitant]
     Active Substance: HYDROXYUREA
     Indication: PRODUCT USED FOR UNKNOWN INDICATION
     Dosage: UNK UKN, UNK
  5. JAKAFI [Suspect]
     Active Substance: RUXOLITINIB
     Indication: MYELOFIBROSIS
     Dosage: 15 MG, BID
     Route: 048
     Dates: start: 20130813, end: 20130818
  6. JAKAFI [Suspect]
     Active Substance: RUXOLITINIB
     Dosage: 15 MG, BID
     Route: 048
     Dates: start: 20141004
  7. XARELTO [Concomitant]
     Active Substance: RIVAROXABAN
     Indication: PRODUCT USED FOR UNKNOWN INDICATION
     Dosage: UNK UKN, UNK
  8. FOLATE [Concomitant]
     Active Substance: FOLATE SODIUM
     Indication: PRODUCT USED FOR UNKNOWN INDICATION
     Dosage: UNK UKN, UNK
  9. JAKAFI [Suspect]
     Active Substance: RUXOLITINIB
     Dosage: 15 MG, QD
     Route: 048
     Dates: start: 20130822, end: 20140505

REACTIONS (33)
  - Death [Fatal]
  - Myelofibrosis [Unknown]
  - Disorientation [Unknown]
  - Drug ineffective [Unknown]
  - Blindness transient [Unknown]
  - Bowel movement irregularity [Unknown]
  - Intestinal obstruction [Unknown]
  - Oncologic complication [Unknown]
  - Cough [Unknown]
  - White blood cell count abnormal [Unknown]
  - Pallor [Unknown]
  - Productive cough [Unknown]
  - Vomiting [Unknown]
  - Fatigue [Unknown]
  - Hepatomegaly [Unknown]
  - Asthenia [Unknown]
  - Constipation [Not Recovered/Not Resolved]
  - Myalgia [Unknown]
  - Somnolence [Unknown]
  - Pneumonia [Unknown]
  - Feeling cold [Unknown]
  - Pain in extremity [Unknown]
  - Hypersomnia [Unknown]
  - Abdominal pain [Unknown]
  - Cystitis [Unknown]
  - Confusional state [Unknown]
  - Splenomegaly [Unknown]
  - Pulmonary mass [Unknown]
  - Peripheral swelling [Unknown]
  - Dyspnoea [Unknown]
  - Bone pain [Not Recovered/Not Resolved]
  - Feeling abnormal [Unknown]
  - Bedridden [Unknown]

NARRATIVE: CASE EVENT DATE: 20130813
